FAERS Safety Report 8230245-4 (Version None)
Quarter: 2012Q1

REPORT INFORMATION
  Report Type: 
  Country: None (occurrence: None)
  Receive Date: 20120321
  Receipt Date: 20120321
  Transmission Date: 20120608
  Serious: No
  Sender: FDA-Public Use
  Company Number: None

PATIENT
  Sex: Female

DRUGS (1)
  1. STELARA [Suspect]
     Indication: RESPIRATORY DISORDER
     Dosage: 90 MG/ML SC INJECT 90 MG SUBCUTANEOUSLY AT WEEKS 0 + 4, THEN EVERY 12 WEEKS
     Route: 058
     Dates: start: 20120309

REACTIONS (3)
  - CONDITION AGGRAVATED [None]
  - PSORIASIS [None]
  - DYSPNOEA [None]
